FAERS Safety Report 9392693 (Version 1)
Quarter: 2013Q3

REPORT INFORMATION
  Report Type: Spontaneous
  Country: US (occurrence: None)
  Receive Date: 20130708
  Receipt Date: 20130708
  Transmission Date: 20140515
  Serious: No
  Sender: FDA-Public Use
  Company Number: None

PATIENT
  Age: 69 Year
  Sex: Male

DRUGS (1)
  1. TECFIDERA [Suspect]
     Indication: MULTIPLE SCLEROSIS
     Dosage: 2 TIMES A DAY FOR 7 DAYS
     Route: 048
     Dates: start: 20130606, end: 20130701

REACTIONS (6)
  - Nausea [None]
  - Vomiting [None]
  - Headache [None]
  - Decreased appetite [None]
  - Hypersomnia [None]
  - Asthenia [None]
